FAERS Safety Report 4266857-2 (Version None)
Quarter: 2004Q1

REPORT INFORMATION
  Report Type: 
  Country: None (occurrence: None)
  Receive Date: 20040108
  Receipt Date: 20040108
  Transmission Date: 20041129
  Serious: No
  Sender: FDA-Public Use
  Company Number: None

PATIENT
  Age: 19 Year
  Sex: Female
  Weight: 56.6996 kg

DRUGS (1)
  1. DEPO-PROVERA [Suspect]
     Indication: CONTRACEPTION

REACTIONS (9)
  - ALOPECIA [None]
  - ARRHYTHMIA [None]
  - DEPRESSION [None]
  - DYSMENORRHOEA [None]
  - EMOTIONAL DISORDER [None]
  - LOSS OF LIBIDO [None]
  - MENORRHAGIA [None]
  - MOOD SWINGS [None]
  - WEIGHT INCREASED [None]
